FAERS Safety Report 10590413 (Version 1)
Quarter: 2014Q4

REPORT INFORMATION
  Report Type: Spontaneous
  Country: US (occurrence: None)
  Receive Date: 20141117
  Receipt Date: 20141117
  Transmission Date: 20150529
  Serious: No
  Sender: FDA-Public Use
  Company Number: None

PATIENT
  Age: 58 Year
  Sex: Female
  Weight: 58.97 kg

DRUGS (1)
  1. RESTASIS [Suspect]
     Active Substance: CYCLOSPORINE
     Indication: DRY EYE
     Dosage: 1 DROP EACH EYE BID, INTO THE EYE
     Dates: start: 20111115, end: 20141113

REACTIONS (3)
  - Inappropriate schedule of drug administration [None]
  - Oral herpes [None]
  - Immune system disorder [None]

NARRATIVE: CASE EVENT DATE: 20141101
